FAERS Safety Report 7589809-3 (Version None)
Quarter: 2011Q3

REPORT INFORMATION
  Report Type: 
  Country: None (occurrence: None)
  Receive Date: 20110705
  Receipt Date: 20110629
  Transmission Date: 20111222
  Serious: Yes (Other)
  Sender: FDA-Public Use
  Company Number: JP-ABBOTT-10P-087-0628798-00

PATIENT
  Sex: Male

DRUGS (4)
  1. VIREAD [Concomitant]
     Indication: HIV INFECTION
     Route: 048
     Dates: start: 20080401
  2. KALETRA [Suspect]
     Indication: HIV INFECTION
     Route: 048
     Dates: start: 20080401
  3. EPIVIR [Concomitant]
     Indication: HIV INFECTION
     Route: 048
     Dates: start: 20080401
  4. OCTOCOG ALFA [Concomitant]
     Indication: HAEMOPHILIA
     Dates: start: 20080401

REACTIONS (1)
  - HEPATIC NEOPLASM MALIGNANT [None]
